FAERS Safety Report 11662326 (Version 1)
Quarter: 2015Q4

REPORT INFORMATION
  Report Type: Spontaneous
  Country: PE (occurrence: PE)
  Receive Date: 20151027
  Receipt Date: 20151027
  Transmission Date: 20160304
  Serious: Yes (Hospitalization)
  Sender: FDA-Public Use
  Company Number: PE-009507513-1510PER012100

PATIENT
  Age: 56 Year
  Sex: Male

DRUGS (1)
  1. JANUVIA [Suspect]
     Active Substance: SITAGLIPTIN PHOSPHATE
     Dosage: 100 MG, QD
     Route: 048
     Dates: start: 20151007

REACTIONS (2)
  - Infection [Unknown]
  - Diabetes mellitus [Unknown]

NARRATIVE: CASE EVENT DATE: 20151012
